FAERS Safety Report 9218969 (Version 1)
Quarter: 2013Q1

REPORT INFORMATION
  Report Type: Spontaneous
  Country: US (occurrence: None)
  Receive Date: 20120827
  Receipt Date: 20120827
  Transmission Date: 20140127
  Serious: No
  Sender: FDA-Public Use
  Company Number: 350715

PATIENT
  Age: 71 Year
  Sex: Male

DRUGS (1)
  1. VICTOZA (LIRAGLUTIDE) SOLUTION FOR INJECTION, 6MG/ML [Suspect]
     Indication: TYPE 2 DIABETES MELLITUS

REACTIONS (6)
  - Weight decreased [None]
  - Dyspepsia [None]
  - Headache [None]
  - Injection site haematoma [None]
  - Injection site urticaria [None]
  - Injection site haemorrhage [None]
